FAERS Safety Report 12402231 (Version 1)
Quarter: 2016Q2

REPORT INFORMATION
  Report Type: Spontaneous
  Country: IT (occurrence: IT)
  Receive Date: 20160525
  Receipt Date: 20160525
  Transmission Date: 20160815
  Serious: Yes (Other)
  Sender: FDA-Public Use
  Company Number: IT-SA-2016SA098817

PATIENT
  Age: 68 Year
  Sex: Female

DRUGS (11)
  1. TEGRETOL [Suspect]
     Active Substance: CARBAMAZEPINE
     Indication: EPILEPSY
     Route: 048
     Dates: start: 20151031, end: 20151106
  2. RIVOTRIL [Concomitant]
     Active Substance: CLONAZEPAM
     Dosage: 2.5 MG/ML
     Route: 048
  3. TEGRETOL [Suspect]
     Active Substance: CARBAMAZEPINE
     Indication: HEADACHE
     Route: 048
     Dates: start: 20151031, end: 20151106
  4. AMLODIPINE [Concomitant]
     Active Substance: AMLODIPINE BESYLATE
     Indication: HYPERTENSION
     Route: 048
  5. LASIX [Concomitant]
     Active Substance: FUROSEMIDE
     Dosage: 500 MG
  6. NEURONTIN [Concomitant]
     Active Substance: GABAPENTIN
  7. LASIX [Suspect]
     Active Substance: FUROSEMIDE
     Indication: HYPERTENSION
     Route: 048
     Dates: start: 20150101, end: 20151106
  8. LYRICA [Concomitant]
     Active Substance: PREGABALIN
  9. FLUOXETINE [Concomitant]
     Active Substance: FLUOXETINE HYDROCHLORIDE
     Indication: DEPRESSION
     Route: 048
  10. ASACOL [Concomitant]
     Active Substance: MESALAMINE
     Dosage: 800 MG GASTRO-RESISTANT COATED TABLETS
     Route: 048
  11. PALEXIA [Concomitant]
     Active Substance: TAPENTADOL HYDROCHLORIDE

REACTIONS (6)
  - Petit mal epilepsy [Recovering/Resolving]
  - Malaise [Recovering/Resolving]
  - Hyponatraemia [Recovering/Resolving]
  - Headache [Recovering/Resolving]
  - Presyncope [Recovering/Resolving]
  - Toxicity to various agents [Recovering/Resolving]

NARRATIVE: CASE EVENT DATE: 20151106
